FAERS Safety Report 15117250 (Version 2)
Quarter: 2018Q3

REPORT INFORMATION
  Report Type: Spontaneous
  Country: BR (occurrence: BR)
  Receive Date: 20180706
  Receipt Date: 20180706
  Transmission Date: 20181010
  Serious: Yes (Hospitalization, Other)
  Sender: FDA-Public Use
  Company Number: PHHY2018BR034390

PATIENT
  Age: 52 Year
  Sex: Female

DRUGS (5)
  1. REVOLADE [Suspect]
     Active Substance: ELTROMBOPAG
     Indication: APLASTIC ANAEMIA
     Dosage: 50 MG, QD
     Route: 065
  2. REVOLADE [Suspect]
     Active Substance: ELTROMBOPAG
     Dosage: 100 MG, QD
     Route: 065
  3. CICLOSPORIN [Suspect]
     Active Substance: CYCLOSPORINE
     Indication: APLASTIC ANAEMIA
     Dosage: 5 MG/KG, QD
     Route: 048
  4. ATG [Concomitant]
     Active Substance: LAPINE T-LYMPHOCYTE IMMUNE GLOBULIN
     Indication: APLASTIC ANAEMIA
     Dosage: 3.5 MG/KG, QD
     Route: 065
  5. REVOLADE [Suspect]
     Active Substance: ELTROMBOPAG
     Dosage: 150 MG, QD
     Route: 065

REACTIONS (10)
  - Febrile neutropenia [Unknown]
  - Haematocrit decreased [Unknown]
  - White blood cell count decreased [Unknown]
  - Transaminases increased [Unknown]
  - Bone marrow failure [Unknown]
  - Erythropoiesis abnormal [Unknown]
  - Haemoglobin decreased [Unknown]
  - Mean cell volume increased [Unknown]
  - Platelet count decreased [Unknown]
  - Reticulocyte count increased [Unknown]
